FAERS Safety Report 5493124-1 (Version None)
Quarter: 2007Q4

REPORT INFORMATION
  Report Type: 
  Country: None (occurrence: None)
  Receive Date: 20071023
  Receipt Date: 20071019
  Transmission Date: 20080405
  Serious: Yes (Death)
  Sender: FDA-Public Use
  Company Number: JP-SANOFI-SYNTHELABO-F01200701337

PATIENT
  Sex: Male

DRUGS (9)
  1. URSO 250 [Concomitant]
     Dosage: UNK
     Dates: start: 20070702
  2. 1 CONCOMITANT DRUG [Concomitant]
     Dosage: UNK
     Dates: start: 20070702
  3. LEUCON [Concomitant]
     Dosage: UNK
     Dates: start: 20070702
  4. TRAVELMIN [Concomitant]
     Dosage: UNK
     Dates: start: 20070702
  5. ISOVORIN [Concomitant]
     Dosage: UNK
  6. FLUOROURACIL [Concomitant]
     Dosage: UNK
  7. OXALIPLATIN [Suspect]
     Indication: RECTAL CANCER RECURRENT
     Dosage: UNK
     Route: 041
  8. SHAKUYAKU-KANZO-TO [Concomitant]
     Dosage: UNK
     Dates: start: 20070702
  9. BEVACIZUMAB [Suspect]
     Route: 041

REACTIONS (4)
  - EPISTAXIS [None]
  - GINGIVAL BLEEDING [None]
  - HAEMORRHAGE [None]
  - PYREXIA [None]
